FAERS Safety Report 5301193-4 (Version None)
Quarter: 2007Q2

REPORT INFORMATION
  Report Type: 
  Country: None (occurrence: None)
  Receive Date: 20070418
  Receipt Date: 20070410
  Transmission Date: 20071010
  Serious: Yes (Other)
  Sender: FDA-Public Use
  Company Number: US-PFIZER INC-2007028983

PATIENT
  Sex: Female
  Weight: 113.4 kg

DRUGS (8)
  1. GEODON [Suspect]
     Indication: SCHIZOAFFECTIVE DISORDER
  2. CARBAMAZEPINE [Concomitant]
  3. PLAVIX [Concomitant]
  4. LISINOPRIL [Concomitant]
  5. GLUCOPHAGE [Concomitant]
  6. GLUCOTROL [Concomitant]
  7. AVANDIA [Concomitant]
  8. ZOCOR [Concomitant]

REACTIONS (2)
  - HYPERTENSION [None]
  - PERIPHERAL VASCULAR DISORDER [None]
